FAERS Safety Report 12238263 (Version 1)
Quarter: 2016Q2

REPORT INFORMATION
  Report Type: Spontaneous
  Country: US (occurrence: None)
  Receive Date: 20160404
  Receipt Date: 20160404
  Transmission Date: 20160815
  Serious: Yes (Death)
  Sender: FDA-Public Use
  Company Number: None

PATIENT
  Age: 60 Year
  Sex: Female

DRUGS (2)
  1. VYTORIN [Suspect]
     Active Substance: EZETIMIBE\SIMVASTATIN
     Indication: CYSTIC FIBROSIS
     Route: 048
     Dates: start: 20150401
  2. ZYVOX [Suspect]
     Active Substance: LINEZOLID
     Indication: CYSTIC FIBROSIS
     Route: 048
     Dates: start: 20150521

REACTIONS (1)
  - Death [None]
